FAERS Safety Report 9744577 (Version 2)
Quarter: 2013Q4

REPORT INFORMATION
  Report Type: Spontaneous
  Country: US (occurrence: US)
  Receive Date: 20131210
  Receipt Date: 20131210
  Transmission Date: 20140711
  Serious: Yes (Hospitalization, Other)
  Sender: FDA-Public Use
  Company Number: US-ACORDA-ACO_32561_2012

PATIENT
  Age: 47 Year
  Sex: Female

DRUGS (7)
  1. AMPYRA [Suspect]
     Indication: GAIT DISTURBANCE
     Dosage: 10 MG, Q 12 HRS
     Route: 065
     Dates: start: 20110611
  2. AMPYRA [Suspect]
     Dosage: 10 MG, BID
     Dates: start: 20130312
  3. VICODIN [Concomitant]
     Indication: BACK PAIN
     Dosage: 7.5/500 (1.5 TAB/DAY)
     Route: 048
  4. VICODIN [Concomitant]
     Indication: ARTHRALGIA
  5. GABAPENTIN [Concomitant]
     Indication: MIGRAINE
     Dosage: 400 MG, QD
     Route: 048
     Dates: end: 201208
  6. FLOMAX [Concomitant]
     Indication: URINARY INCONTINENCE
     Dosage: 0.4 MG, QD
     Route: 048
  7. NUVIGIL [Concomitant]
     Indication: PRODUCT USED FOR UNKNOWN INDICATION
     Dosage: 250 MG, QD
     Route: 048

REACTIONS (8)
  - Transient ischaemic attack [Unknown]
  - Dysarthria [Unknown]
  - Coordination abnormal [Unknown]
  - Urinary retention [Recovered/Resolved]
  - Multiple sclerosis relapse [Recovered/Resolved]
  - Urinary tract infection [Unknown]
  - Urinary incontinence [Recovering/Resolving]
  - Muscle spasms [Recovered/Resolved]
